FAERS Safety Report 4660948-X (Version None)
Quarter: 2005Q2

REPORT INFORMATION
  Report Type: 
  Country: None (occurrence: None)
  Receive Date: 20050511
  Receipt Date: 20050427
  Transmission Date: 20051028
  Serious: Yes (Hospitalization)
  Sender: FDA-Public Use
  Company Number: CERZ-10881

PATIENT
  Age: 48 Year
  Sex: Male
  Weight: 113.4 kg

DRUGS (2)
  1. CEREZYME [Suspect]
     Indication: GAUCHER'S DISEASE
     Dosage: 6000 UNITS Q2WKS IV
     Route: 042
     Dates: start: 19951130
  2. IBUPROFEN [Concomitant]

REACTIONS (3)
  - ANKLE FRACTURE [None]
  - FIBULA FRACTURE [None]
  - TIBIA FRACTURE [None]
